FAERS Safety Report 9565464 (Version 1)
Quarter: 2013Q3

REPORT INFORMATION
  Report Type: Spontaneous
  Country: CA (occurrence: CA)
  Receive Date: 20130930
  Receipt Date: 20130930
  Transmission Date: 20140515
  Serious: Yes (Other)
  Sender: FDA-Public Use
  Company Number: PHHY2013CA108776

PATIENT
  Age: 74 Year
  Sex: Female

DRUGS (2)
  1. DIOVAN [Suspect]
     Indication: HYPERTENSION
     Dosage: 80 MG, UNK
  2. DIOVAN [Suspect]
     Dosage: 160 MG, UNK

REACTIONS (13)
  - Road traffic accident [Unknown]
  - Rheumatic disorder [Unknown]
  - Malaise [Recovering/Resolving]
  - Gait disturbance [Unknown]
  - Somnolence [Unknown]
  - Neck pain [Unknown]
  - Eye pain [Unknown]
  - Hypersensitivity [Recovering/Resolving]
  - Muscle spasms [Unknown]
  - Cough [Unknown]
  - Dizziness [Unknown]
  - Diarrhoea [Unknown]
  - Headache [Unknown]
